FAERS Safety Report 23336560 (Version 1)
Quarter: 2023Q4

REPORT INFORMATION
  Report Type: Spontaneous
  Country: NL (occurrence: NL)
  Receive Date: 20231226
  Receipt Date: 20231226
  Transmission Date: 20240109
  Serious: Yes (Life-Threatening, Hospitalization)
  Sender: FDA-Public Use
  Company Number: NL-AUROBINDO-AUR-APL-2014-10705

PATIENT
  Age: 19 Year
  Sex: Female

DRUGS (1)
  1. COLCHICINE [Suspect]
     Active Substance: COLCHICINE
     Indication: Product used for unknown indication
     Dosage: 35 MILLIGRA (0.64 MG PER KILOGRAM BODYWEIGHT)
     Route: 048

REACTIONS (41)
  - Suicide attempt [Recovered/Resolved]
  - Multiple organ dysfunction syndrome [Recovered/Resolved]
  - Acute kidney injury [Recovered/Resolved]
  - Hepatic failure [Recovered/Resolved]
  - Haemodynamic instability [Recovered/Resolved]
  - Myelosuppression [Recovered/Resolved]
  - Respiratory failure [Recovered/Resolved]
  - Acute respiratory distress syndrome [Recovered/Resolved]
  - Vomiting [Recovered/Resolved]
  - Somnolence [Recovered/Resolved]
  - Abdominal pain [Recovered/Resolved]
  - Leukocytosis [Recovered/Resolved]
  - Alanine aminotransferase increased [Recovered/Resolved]
  - Blood creatinine increased [Recovered/Resolved]
  - Blood potassium increased [Recovered/Resolved]
  - Blood lactic acid increased [Recovered/Resolved]
  - Haemoglobin decreased [Recovered/Resolved]
  - White blood cell count decreased [Recovered/Resolved]
  - Blood lactate dehydrogenase increased [Recovered/Resolved]
  - Blood creatine phosphokinase increased [Recovered/Resolved]
  - Blood alkaline phosphatase increased [Recovered/Resolved]
  - Gamma-glutamyltransferase increased [Recovered/Resolved]
  - Blood urea increased [Recovered/Resolved]
  - C-reactive protein increased [Recovered/Resolved]
  - Activated partial thromboplastin time prolonged [Recovered/Resolved]
  - Prothrombin time prolonged [Recovered/Resolved]
  - Blood fibrinogen decreased [Recovered/Resolved]
  - Coagulopathy [Recovered/Resolved]
  - Hepatic function abnormal [Recovered/Resolved]
  - Thrombocytopenia [Recovered/Resolved]
  - Bacterial translocation [Recovered/Resolved]
  - International normalised ratio increased [Recovered/Resolved]
  - Hypoglycaemia [Recovered/Resolved]
  - Ileus [Recovered/Resolved]
  - Pyrexia [Recovered/Resolved]
  - Device related infection [Recovered/Resolved]
  - Alopecia [Recovered/Resolved]
  - Gastrointestinal motility disorder [Recovered/Resolved]
  - Overdose [Recovered/Resolved]
  - Toxicity to various agents [Recovered/Resolved]
  - Aspartate aminotransferase increased [Recovered/Resolved]
